FAERS Safety Report 9512072 (Version 1)
Quarter: 2013Q1

REPORT INFORMATION
  Report Type: Spontaneous
  Country: US (occurrence: None)
  Receive Date: 20130305
  Receipt Date: 20130305
  Transmission Date: 20140127
  Serious: Yes (Other)
  Sender: FDA-Public Use
  Company Number: 163-21880-11120293

PATIENT
  Age: 74 Year
  Sex: Male

DRUGS (8)
  1. REVLIMID (LENALIDOMIDE) (25 MILLIGRAM, CAPSULES) [Suspect]
     Indication: PLASMA CELL MYELOMA
     Dosage: 1 IN 1 D
     Route: 048
     Dates: start: 20101126
  2. ADVAIR (SERETIDE MITE) [Concomitant]
  3. ALBUTEROL (SALBUTAMOL) [Concomitant]
  4. ASA (ACETYLSALICYLIC ACID) [Concomitant]
  5. VITAMINS [Concomitant]
  6. OSMOLITE (OSMOLITE) [Concomitant]
  7. PREDNISONE (PREDNISONE) [Concomitant]
  8. ZANTAC (RANITIDINE HYDROCHLORIDE) [Concomitant]

REACTIONS (2)
  - Pancytopenia [None]
  - White blood cell count decreased [None]
